FAERS Safety Report 8255849-4 (Version None)
Quarter: 2012Q2

REPORT INFORMATION
  Report Type: 
  Country: None (occurrence: None)
  Receive Date: 20120403
  Receipt Date: 20120329
  Transmission Date: 20120825
  Serious: Yes (Death, Hospitalization)
  Sender: FDA-Public Use
  Company Number: US-ACTELION-A-NJ2012-60376

PATIENT

DRUGS (4)
  1. REVATIO [Concomitant]
  2. VENTAVIS [Suspect]
     Dosage: 2.5 ?G, 6-9XDAILY
     Route: 055
     Dates: start: 20110928
  3. COUMADIN [Concomitant]
  4. VENTAVIS [Suspect]
     Indication: PULMONARY ARTERIAL HYPERTENSION
     Dosage: 5 ?G, 6-9XDAILY
     Route: 055
     Dates: start: 20110101

REACTIONS (3)
  - DEATH [None]
  - CEREBROVASCULAR ACCIDENT [None]
  - MYOCARDIAL INFARCTION [None]
